FAERS Safety Report 4545741-0 (Version None)
Quarter: 2005Q1

REPORT INFORMATION
  Report Type: 
  Country: None (occurrence: None)
  Receive Date: 20050104
  Receipt Date: 20050104
  Transmission Date: 20050727
  Serious: Yes (Other)
  Sender: FDA-Public Use
  Company Number: None

PATIENT
  Age: 85 Year
  Sex: Male
  Weight: 72.5755 kg

DRUGS (1)
  1. THYROID    1 GRAIN 60 MG    QUALITEST PHARMACUTICALS [Suspect]
     Indication: THYROID DISORDER

REACTIONS (1)
  - MEDICATION ERROR [None]
